FAERS Safety Report 7052316-0 (Version None)
Quarter: 2010Q4

REPORT INFORMATION
  Report Type: 
  Country: None (occurrence: None)
  Receive Date: 20101019
  Receipt Date: 20101011
  Transmission Date: 20110411
  Serious: Yes (Death)
  Sender: FDA-Public Use
  Company Number: US-BAXTER-2010BH025381

PATIENT
  Sex: Male

DRUGS (2)
  1. DIANEAL [Suspect]
     Indication: PERITONEAL DIALYSIS
     Route: 033
     Dates: end: 20100801
  2. DIANEAL [Suspect]
     Indication: DYSPNOEA
     Route: 033
     Dates: end: 20100801

REACTIONS (2)
  - DYSPNOEA [None]
  - HEPATIC NEOPLASM MALIGNANT [None]
